FAERS Safety Report 9625129 (Version 1)
Quarter: 2013Q4

REPORT INFORMATION
  Report Type: Spontaneous
  Country: BR (occurrence: BR)
  Receive Date: 20131016
  Receipt Date: 20131016
  Transmission Date: 20140711
  Serious: Yes (Other)
  Sender: FDA-Public Use
  Company Number: BR-JNJFOC-20131006862

PATIENT
  Sex: Female
  Weight: 73 kg

DRUGS (2)
  1. REMICADE [Suspect]
     Indication: PSORIASIS
     Route: 042
     Dates: start: 2009
  2. PURAN T4 [Concomitant]
     Indication: HYPOTHYROIDISM
     Route: 065

REACTIONS (4)
  - Blood pressure increased [Not Recovered/Not Resolved]
  - Glucose tolerance impaired [Not Recovered/Not Resolved]
  - Hepatic enzyme abnormal [Recovered/Resolved]
  - Weight decreased [Not Recovered/Not Resolved]
